FAERS Safety Report 17214317 (Version 3)
Quarter: 2020Q2

REPORT INFORMATION
  Report Type: Spontaneous
  Country: JP (occurrence: JP)
  Receive Date: 20191230
  Receipt Date: 20200621
  Transmission Date: 20200713
  Serious: Yes (Hospitalization, Other)
  Sender: FDA-Public Use
  Company Number: JP-UCBSA-2019055932

PATIENT
  Age: 49 Year
  Sex: Female

DRUGS (14)
  1. E KEPPRA [Suspect]
     Active Substance: LEVETIRACETAM
     Dosage: 500 MILLIGRAM DAILY
     Route: 048
     Dates: start: 20171220, end: 20180122
  2. E KEPPRA [Suspect]
     Active Substance: LEVETIRACETAM
     Dosage: 1750 MILLIGRAM ,DAILY
     Route: 048
     Dates: start: 20190716, end: 20191013
  3. PHENOBAL [PHENOBARBITAL SODIUM] [Concomitant]
     Indication: PRODUCT USED FOR UNKNOWN INDICATION
     Dosage: 60 MILLIGRAM DAILY
     Route: 048
  4. MYSTAN [Concomitant]
     Active Substance: CLOBAZAM
     Dosage: 10 MILLIGRAM  DAILY
     Route: 048
     Dates: start: 20180830, end: 20181129
  5. E KEPPRA [Suspect]
     Active Substance: LEVETIRACETAM
     Indication: EPILEPSY
     Dosage: 250 MG DAILY
     Route: 048
     Dates: start: 20171211
  6. E KEPPRA [Suspect]
     Active Substance: LEVETIRACETAM
     Dosage: 750 MILLIGRAM  DAILY
     Route: 048
     Dates: start: 20180123, end: 20180201
  7. E KEPPRA [Suspect]
     Active Substance: LEVETIRACETAM
     Dosage: 750 MILLIGRAM  DAILY
     Route: 048
     Dates: start: 20191101, end: 20191107
  8. E KEPPRA [Suspect]
     Active Substance: LEVETIRACETAM
     Dosage: 1250 MILLIGRAM ,DAILY
     Route: 048
     Dates: start: 20191025, end: 20191031
  9. E KEPPRA [Suspect]
     Active Substance: LEVETIRACETAM
     Dosage: 1500 MILLIGRAM DAILY
     Route: 048
     Dates: start: 20190508, end: 20190715
  10. VIMPAT [Concomitant]
     Active Substance: LACOSAMIDE
     Indication: PRODUCT USED FOR UNKNOWN INDICATION
     Dosage: 100 MILLIGRAM DAILY
     Route: 048
     Dates: start: 20181130, end: 20190212
  11. MYSTAN [Concomitant]
     Active Substance: CLOBAZAM
     Indication: PRODUCT USED FOR UNKNOWN INDICATION
     Dosage: 5 MILLIGRAM DAILY
     Route: 048
     Dates: start: 20180614, end: 20180829
  12. E KEPPRA [Suspect]
     Active Substance: LEVETIRACETAM
     Dosage: 2250 MILLIGRAM , DAILY
     Route: 048
     Dates: start: 20191108, end: 20191114
  13. VIMPAT [Concomitant]
     Active Substance: LACOSAMIDE
     Dosage: 50 MILLIGRAM  DAILY
     Route: 048
     Dates: start: 20190213, end: 20190507
  14. E KEPPRA [Suspect]
     Active Substance: LEVETIRACETAM
     Dosage: 1000 MILLIGRAM DAILY
     Route: 048
     Dates: start: 20180202, end: 20190507

REACTIONS (3)
  - Epilepsy [Recovered/Resolved]
  - Renal impairment [Recovered/Resolved]
  - Oedema [Recovering/Resolving]

NARRATIVE: CASE EVENT DATE: 20180830
